FAERS Safety Report 16165004 (Version 1)
Quarter: 2019Q2

REPORT INFORMATION
  Report Type: Spontaneous
  Country: CA (occurrence: CA)
  Receive Date: 20190405
  Receipt Date: 20190405
  Transmission Date: 20190711
  Serious: Yes (Death, Life-Threatening, Hospitalization)
  Sender: FDA-Public Use
  Company Number: CA-STERINOVA INC.-HPR-19-002

PATIENT
  Age: 67 Year
  Sex: Male

DRUGS (3)
  1. HEPARIN SODIUM. [Suspect]
     Active Substance: HEPARIN SODIUM
     Indication: PRODUCT USED FOR UNKNOWN INDICATION
     Dosage: 5000 U, EVERY 12 HOURS
     Route: 058
  2. HEPARIN SODIUM. [Suspect]
     Active Substance: HEPARIN SODIUM
     Dosage: 50000 U, UNK
  3. ENOXAPARIN SODIUM. [Suspect]
     Active Substance: ENOXAPARIN SODIUM
     Dosage: UNK
     Route: 058

REACTIONS (12)
  - Abdominal pain upper [Fatal]
  - Lethargy [Fatal]
  - Renal failure [Fatal]
  - Heparin-induced thrombocytopenia [Fatal]
  - Mechanical ventilation [Fatal]
  - Platelet disorder [Fatal]
  - Resuscitation [Fatal]
  - Sepsis [Fatal]
  - Surgery [Fatal]
  - Intestinal infarction [Fatal]
  - Colectomy [Fatal]
  - Colostomy [Fatal]
